FAERS Safety Report 8923606 (Version 2)
Quarter: 2013Q1

REPORT INFORMATION
  Report Type: Spontaneous
  Country: FR (occurrence: FR)
  Receive Date: 20121123
  Receipt Date: 20130222
  Transmission Date: 20140127
  Serious: Yes (Other)
  Sender: FDA-Public Use
  Company Number: PHHY2012FR106995

PATIENT
  Age: 46 Year
  Sex: Male

DRUGS (2)
  1. MYFORTIC [Suspect]
     Indication: RENAL TRANSPLANT
     Dosage: UNK UKN, UNK
  2. TAHOR [Concomitant]

REACTIONS (3)
  - Ventricular extrasystoles [Unknown]
  - Bradycardia [Recovering/Resolving]
  - Palpitations [Recovered/Resolved]
